FAERS Safety Report 24399373 (Version 1)
Quarter: 2024Q4

REPORT INFORMATION
  Report Type: Other
  Country: US (occurrence: US)
  Receive Date: 20241004
  Receipt Date: 20241004
  Transmission Date: 20250115
  Serious: Yes (Life-Threatening, Hospitalization, Disabling)
  Sender: B BRAUN
  Company Number: US-B.Braun Medical Inc.-2162496

PATIENT
  Age: 64 Year
  Sex: Male

DRUGS (4)
  1. HEPARIN SODIUM IN DEXTROSE [Suspect]
     Active Substance: HEPARIN SODIUM
     Indication: Arterial thrombosis
  2. HYDROXYUREA [Concomitant]
     Active Substance: HYDROXYUREA
  3. DEXAMETHASONE [Concomitant]
     Active Substance: DEXAMETHASONE
  4. CYTARABINE [Concomitant]
     Active Substance: CYTARABINE

REACTIONS (1)
  - Drug ineffective [Unknown]
